FAERS Safety Report 16939867 (Version 3)
Quarter: 2020Q1

REPORT INFORMATION
  Report Type: Spontaneous
  Country: US (occurrence: US)
  Receive Date: 20191021
  Receipt Date: 20200228
  Transmission Date: 20200409
  Serious: No
  Sender: FDA-Public Use
  Company Number: US-BIOGEN-2019BI00797971

PATIENT
  Age: 56 Year
  Sex: Female

DRUGS (2)
  1. TECFIDERA [Suspect]
     Active Substance: DIMETHYL FUMARATE
     Indication: MULTIPLE SCLEROSIS
     Dosage: MAINTENANCE DOSE
     Route: 048
     Dates: start: 2015
  2. TECFIDERA [Suspect]
     Active Substance: DIMETHYL FUMARATE
     Dosage: STARTING DOSE
     Route: 048
     Dates: start: 20150508

REACTIONS (12)
  - Flushing [Unknown]
  - Anxiety [Not Recovered/Not Resolved]
  - B-lymphocyte count decreased [Unknown]
  - Nasopharyngitis [Unknown]
  - Headache [Unknown]
  - White blood cell count decreased [Unknown]
  - Tremor [Not Recovered/Not Resolved]
  - Fatigue [Unknown]
  - Upper respiratory tract infection [Unknown]
  - Fungal infection [Unknown]
  - Multiple sclerosis relapse [Unknown]
  - Sinusitis [Unknown]

NARRATIVE: CASE EVENT DATE: 20191016
